FAERS Safety Report 5881811-2 (Version None)
Quarter: 2008Q3

REPORT INFORMATION
  Report Type: 
  Country: None (occurrence: None)
  Receive Date: 20080912
  Receipt Date: 20080725
  Transmission Date: 20090109
  Serious: Yes (Hospitalization)
  Sender: FDA-Public Use
  Company Number: US-ABBOTT-08P-163-0463222-00

PATIENT
  Sex: Female
  Weight: 51.756 kg

DRUGS (14)
  1. HUMIRA [Suspect]
     Indication: RHEUMATOID ARTHRITIS
     Route: 058
     Dates: start: 20070313, end: 20080304
  2. CLINDAMYCIN HCL [Suspect]
     Indication: CELLULITIS
     Dosage: IV THEN PO
     Route: 042
     Dates: start: 20080201
  3. CLINDAMYCIN HCL [Suspect]
     Route: 048
     Dates: end: 20080201
  4. CEPHALEXIN MONOHYDRATE [Suspect]
     Indication: CELLULITIS
     Route: 048
     Dates: start: 20080201, end: 20080201
  5. ALENDRONATE SODIUM [Concomitant]
     Indication: OSTEOPOROSIS
  6. AMLODIPINE MALEATE [Concomitant]
     Indication: HYPERTENSION
     Route: 048
  7. CELECOXIB [Concomitant]
     Indication: ARTHRITIS
     Route: 048
  8. FOLIC ACID [Concomitant]
     Indication: DRUG USE FOR UNKNOWN INDICATION
     Route: 048
  9. METHOTREXATE [Concomitant]
     Indication: RHEUMATOID ARTHRITIS
     Route: 048
  10. PREDNISONE TAB [Concomitant]
     Indication: RHEUMATOID ARTHRITIS
     Route: 048
  11. TRIAMTERENE [Concomitant]
     Indication: HYPERTENSION
     Dosage: 37.5/25 MG DAILY
  12. CALCIUM-SANDOZ [Concomitant]
     Indication: OSTEOPOROSIS
     Route: 048
  13. OMEPRAZOLE SODIUM [Concomitant]
     Indication: GASTROOESOPHAGEAL REFLUX DISEASE
     Route: 048
  14. ACETAMINOPHEN [Concomitant]
     Indication: ARTHRALGIA
     Dosage: 3 - 4 TABLETS
     Route: 048

REACTIONS (5)
  - CELLULITIS [None]
  - CLOSTRIDIAL INFECTION [None]
  - DEHYDRATION [None]
  - NAUSEA [None]
  - VOMITING [None]
